FAERS Safety Report 8547806-5 (Version None)
Quarter: 2012Q3

REPORT INFORMATION
  Report Type: 
  Country: None (occurrence: None)
  Receive Date: 20120727
  Receipt Date: 20120308
  Transmission Date: 20120928
  Serious: Yes (Hospitalization)
  Sender: FDA-Public Use
  Company Number: US-ASTRAZENECA-2012SE06169

PATIENT
  Age: 57 Year
  Sex: Female
  Weight: 54.4 kg

DRUGS (9)
  1. ZOLOFT [Concomitant]
  2. SEROQUEL XR [Suspect]
     Indication: BIPOLAR DISORDER
     Route: 048
  3. JANUVIA [Concomitant]
  4. AMPRESIL [Concomitant]
  5. SIMVASTATIN [Concomitant]
  6. XANAX [Concomitant]
  7. WALBUTRINE [Concomitant]
  8. SEROQUEL XR [Suspect]
     Indication: DEPRESSION
     Route: 048
  9. METFORMIN HYDROCHLORIDE [Concomitant]

REACTIONS (6)
  - SUICIDAL BEHAVIOUR [None]
  - CRYING [None]
  - LACRIMATION INCREASED [None]
  - DRUG DOSE OMISSION [None]
  - FORMICATION [None]
  - ACTIVITIES OF DAILY LIVING IMPAIRED [None]
